FAERS Safety Report 8345544-5 (Version None)
Quarter: 2012Q2

REPORT INFORMATION
  Report Type: 
  Country: None (occurrence: None)
  Receive Date: 20120508
  Receipt Date: 20120423
  Transmission Date: 20120825
  Serious: Yes (Other)
  Sender: FDA-Public Use
  Company Number: CHPA2012US009833

PATIENT
  Age: 83 Year
  Sex: Female

DRUGS (4)
  1. REMICADE [Concomitant]
     Dosage: UNK, UNK
     Dates: start: 20100101, end: 20100101
  2. BENEFIBER W/ WHEAT DEXTRIN [Suspect]
     Indication: CONSTIPATION
     Dosage: 2 TSP, EVERY MORNING
     Route: 048
     Dates: end: 20120423
  3. BENEFIBER W/ WHEAT DEXTRIN [Suspect]
     Dosage: UNK, UNK
     Route: 048
  4. PREDNISONE TAB [Concomitant]
     Dosage: UNK, UNK
     Dates: start: 20120101, end: 20120201

REACTIONS (8)
  - BARRETT'S OESOPHAGUS [None]
  - RECTAL HAEMORRHAGE [None]
  - ABDOMINAL DISTENSION [None]
  - GASTROINTESTINAL TRACT ADENOMA [None]
  - DIARRHOEA [None]
  - OFF LABEL USE [None]
  - FLATULENCE [None]
  - COLITIS ULCERATIVE [None]
